FAERS Safety Report 20092059 (Version 1)
Quarter: 2021Q4

REPORT INFORMATION
  Report Type: Spontaneous
  Country: US (occurrence: US)
  Receive Date: 20211119
  Receipt Date: 20211119
  Transmission Date: 20220303
  Serious: Yes (Other)
  Sender: FDA-Public Use
  Company Number: US-ORGANON-O2111USA001400

PATIENT
  Age: 33 Year
  Sex: Male

DRUGS (1)
  1. PROSCAR [Suspect]
     Active Substance: FINASTERIDE
     Dosage: UNK
     Route: 048
     Dates: start: 2020, end: 202109

REACTIONS (7)
  - Suicidal ideation [Unknown]
  - Insomnia [Unknown]
  - Amnesia [Unknown]
  - Disturbance in attention [Unknown]
  - Feeling abnormal [Unknown]
  - Psychiatric symptom [Unknown]
  - Depression [Unknown]
